FAERS Safety Report 4701584-6 (Version None)
Quarter: 2005Q2

REPORT INFORMATION
  Report Type: 
  Country: None (occurrence: None)
  Receive Date: 20050627
  Receipt Date: 20050617
  Transmission Date: 20051028
  Serious: Yes (Other)
  Sender: FDA-Public Use
  Company Number: 2005085337

PATIENT
  Age: 89 Year
  Sex: Female
  Weight: 42.5 kg

DRUGS (9)
  1. ALDACTONE [Suspect]
     Indication: OEDEMA DUE TO CARDIAC DISEASE
     Dosage: 25 MG  ;    12.5MG
     Route: 048
     Dates: end: 20050418
  2. ALDACTONE [Suspect]
     Indication: OEDEMA DUE TO CARDIAC DISEASE
     Dosage: 25 MG  ;    12.5MG
     Route: 048
     Dates: start: 20050502
  3. TORSEMIDE [Suspect]
     Indication: OEDEMA DUE TO CARDIAC DISEASE
     Dosage: 4 MG ORAL
     Route: 048
     Dates: end: 20050418
  4. LASIX [Concomitant]
  5. AMLODIPINE [Concomitant]
  6. TAKEPRON            (LANSOPRAZOLE) [Concomitant]
  7. AMOBAN             (ZOPICLONE) [Concomitant]
  8. SOLANTAL                      (TIRAMIDE HYDROCHLORIDE) [Concomitant]
  9. METHYCOBAL          (MECOBALAMIN) [Concomitant]

REACTIONS (2)
  - BLOOD POTASSIUM INCREASED [None]
  - BLOOD UREA INCREASED [None]
